FAERS Safety Report 20120171 (Version 2)
Quarter: 2021Q4

REPORT INFORMATION
  Report Type: Spontaneous
  Country: IT (occurrence: IT)
  Receive Date: 20211126
  Receipt Date: 20211221
  Transmission Date: 20220303
  Serious: Yes (Death, Other)
  Sender: FDA-Public Use
  Company Number: IT-JAZZ-2021-IT-020866

PATIENT
  Age: 46 Year
  Sex: Female

DRUGS (1)
  1. VYXEOS [Suspect]
     Active Substance: CYTARABINE\DAUNORUBICIN
     Indication: Acute myeloid leukaemia
     Dosage: FIRST INDUCTION
     Dates: end: 20191230

REACTIONS (4)
  - Acute myeloid leukaemia [Fatal]
  - Disease progression [Fatal]
  - Rash maculo-papular [Recovered/Resolved]
  - Parvovirus B19 infection reactivation [Unknown]
